FAERS Safety Report 10221300 (Version 1)
Quarter: 2014Q2

REPORT INFORMATION
  Report Type: Spontaneous
  Country: US (occurrence: US)
  Receive Date: 20140606
  Receipt Date: 20140606
  Transmission Date: 20141212
  Serious: No
  Sender: FDA-Public Use
  Company Number: US-GLAXOSMITHKLINE-A1071224A

PATIENT
  Age: 68 Year
  Sex: Female

DRUGS (3)
  1. BREO ELLIPTA [Suspect]
     Indication: CHRONIC OBSTRUCTIVE PULMONARY DISEASE
     Dosage: 1PUFF PER DAY
     Route: 055
     Dates: start: 20140423
  2. ALBUTEROL NEBULIZER [Concomitant]
  3. UNSPECIFIED MEDICATIONS [Concomitant]

REACTIONS (2)
  - Dyspnoea [Recovered/Resolved]
  - Inhalation therapy [Unknown]
